FAERS Safety Report 16251964 (Version 2)
Quarter: 2019Q2

REPORT INFORMATION
  Report Type: Spontaneous
  Country: FR (occurrence: FR)
  Receive Date: 20190429
  Receipt Date: 20190515
  Transmission Date: 20190711
  Serious: Yes (Hospitalization)
  Sender: FDA-Public Use
  Company Number: FR-PFIZER INC-2019180672

PATIENT
  Age: 59 Year
  Sex: Male

DRUGS (9)
  1. MIANSERINE [MIANSERIN HYDROCHLORIDE] [Interacting]
     Active Substance: MIANSERIN HYDROCHLORIDE
     Indication: DEPRESSION
     Dosage: 1 DF, 1X/DAY
     Route: 048
     Dates: start: 2017, end: 20190402
  2. DEPAKOTE [Interacting]
     Active Substance: DIVALPROEX SODIUM
     Indication: DEPRESSION
     Dosage: 1.5 G, 1X/DAY
     Route: 048
     Dates: start: 2017, end: 20190402
  3. SOLIAN [Interacting]
     Active Substance: AMISULPRIDE
     Indication: DEPRESSION
     Dosage: 400 MG, 1X/DAY
     Route: 048
     Dates: start: 2017, end: 20190402
  4. LOXAPAC [LOXAPINE] [Interacting]
     Active Substance: LOXAPINE
     Indication: DEPRESSION
     Dosage: 50 MG, 1X/DAY
     Route: 048
     Dates: start: 2017, end: 20190402
  5. ANAFRANIL [Interacting]
     Active Substance: CLOMIPRAMINE HYDROCHLORIDE
     Indication: DEPRESSION
     Dosage: 150 MG, 1X/DAY
     Route: 048
     Dates: start: 2017, end: 20190402
  6. ANAFRANIL [Interacting]
     Active Substance: CLOMIPRAMINE HYDROCHLORIDE
     Indication: DEPRESSION
     Dosage: 25 MG, 1X/DAY
     Route: 048
     Dates: start: 2017, end: 20190402
  7. THERALENE [Interacting]
     Active Substance: TRIMEPRAZINE
     Indication: DEPRESSION
     Dosage: 10 MG, 1X/DAY
     Route: 048
     Dates: start: 2017, end: 20190402
  8. VALIUM [Interacting]
     Active Substance: DIAZEPAM
     Indication: DEPRESSION
     Dosage: 30 MG, 1X/DAY
     Route: 048
     Dates: start: 2017, end: 20190402
  9. LYRICA [Suspect]
     Active Substance: PREGABALIN
     Indication: DEPRESSION
     Dosage: 150 MG, 1X/DAY
     Route: 048
     Dates: start: 2017, end: 20190402

REACTIONS (4)
  - Electrocardiogram QT prolonged [Recovered/Resolved]
  - Bradycardia [Recovered/Resolved]
  - Coma scale abnormal [Recovered/Resolved]
  - Drug interaction [Unknown]

NARRATIVE: CASE EVENT DATE: 20190402
